FAERS Safety Report 15305311 (Version 3)
Quarter: 2019Q4

REPORT INFORMATION
  Report Type: Spontaneous
  Country: CA (occurrence: CA)
  Receive Date: 20180822
  Receipt Date: 20191119
  Transmission Date: 20200122
  Serious: Yes (Life-Threatening, Hospitalization, Other)
  Sender: FDA-Public Use
  Company Number: CA-ORION CORPORATION ORION PHARMA-TREX2018-2468

PATIENT
  Age: 83 Year
  Sex: Male
  Weight: 77 kg

DRUGS (21)
  1. METHOTREXATE (TRADE NAME UNKNOWN) [Suspect]
     Active Substance: METHOTREXATE
     Indication: RHEUMATOID ARTHRITIS
     Route: 048
     Dates: start: 20150515, end: 20150529
  2. MEROPENEM. [Suspect]
     Active Substance: MEROPENEM
     Indication: PSEUDOMONAS INFECTION
     Route: 042
  3. METRONIDAZOLE. [Suspect]
     Active Substance: METRONIDAZOLE
     Indication: URETHRITIS
     Dosage: 5 MG/ML
     Route: 042
     Dates: start: 20150527, end: 20150529
  4. HUMIRA [Suspect]
     Active Substance: ADALIMUMAB
     Indication: RHEUMATOID ARTHRITIS
     Dosage: CYCLICAL
     Route: 058
     Dates: start: 20150515, end: 20150529
  5. MEROPENEM. [Suspect]
     Active Substance: MEROPENEM
     Dosage: 2X/DAY (1 EVERY 12 HOURS)
     Route: 042
  6. METRONIDAZOLE. [Suspect]
     Active Substance: METRONIDAZOLE
     Route: 042
  7. VANCOMYCIN HCL [Suspect]
     Active Substance: VANCOMYCIN HYDROCHLORIDE
     Indication: KIDNEY INFECTION
     Dosage: ONCE (GIVEN ON 27TH THEN DOSED AS PER LEVELS THEREAFTER)
     Route: 042
     Dates: start: 20150527, end: 20150527
  8. MYCAMINE [Suspect]
     Active Substance: MICAFUNGIN SODIUM
     Indication: IMMUNODEFICIENCY
  9. MYCAMINE [Suspect]
     Active Substance: MICAFUNGIN SODIUM
     Indication: INFECTION
  10. ACICLOVIR [Suspect]
     Active Substance: ACYCLOVIR
     Indication: HERPES SIMPLEX OESOPHAGITIS
     Route: 042
  11. ACICLOVIR [Suspect]
     Active Substance: ACYCLOVIR
     Dosage: DOSE ADJUSTED FOR RENAL FAILURE, Q8H-Q24H THEN BACK TO Q12H
     Route: 042
     Dates: start: 20150523, end: 20150529
  12. MEROPENEM. [Suspect]
     Active Substance: MEROPENEM
     Indication: URINARY TRACT INFECTION
     Route: 065
     Dates: start: 20150527, end: 20150529
  13. MEROPENEM. [Suspect]
     Active Substance: MEROPENEM
     Indication: IMMUNODEFICIENCY
     Route: 065
  14. METRONIDAZOLE. [Suspect]
     Active Substance: METRONIDAZOLE
     Indication: CLOSTRIDIUM DIFFICILE INFECTION
     Route: 065
  15. METRONIDAZOLE. [Suspect]
     Active Substance: METRONIDAZOLE
     Dosage: 3X/DAY (EVERY 8 HOUR)
     Route: 042
  16. MYCAMINE [Suspect]
     Active Substance: MICAFUNGIN SODIUM
     Indication: URETHRITIS
     Route: 042
     Dates: start: 20150527, end: 20150529
  17. METRONIDAZOLE. [Suspect]
     Active Substance: METRONIDAZOLE
     Route: 065
  18. METRONIDAZOLE. [Suspect]
     Active Substance: METRONIDAZOLE
     Route: 065
  19. METRONIDAZOLE. [Suspect]
     Active Substance: METRONIDAZOLE
     Indication: IMMUNODEFICIENCY
     Route: 065
  20. VANCOMYCIN HCL [Suspect]
     Active Substance: VANCOMYCIN HYDROCHLORIDE
     Route: 042
  21. HUMIRA [Suspect]
     Active Substance: ADALIMUMAB
     Route: 058

REACTIONS (9)
  - Herpes simplex oesophagitis [Recovering/Resolving]
  - Anaemia [Recovering/Resolving]
  - Glomerular filtration rate decreased [Recovering/Resolving]
  - Asthenia [Recovering/Resolving]
  - Dysphagia [Recovering/Resolving]
  - Renal failure [Recovering/Resolving]
  - C-reactive protein increased [Recovering/Resolving]
  - Infection [Recovering/Resolving]
  - White blood cell count increased [Recovering/Resolving]

NARRATIVE: CASE EVENT DATE: 201505
